FAERS Safety Report 7298801-8 (Version None)
Quarter: 2011Q1

REPORT INFORMATION
  Report Type: 
  Country: None (occurrence: None)
  Receive Date: 20110204
  Receipt Date: 20110201
  Transmission Date: 20110831
  Serious: Yes (Hospitalization)
  Sender: FDA-Public Use
  Company Number: 2011SP004793

PATIENT
  Age: 41 Year
  Sex: Male
  Weight: 79 kg

DRUGS (4)
  1. SIMVASTATIN [Concomitant]
  2. WELLBUTRIN [Concomitant]
  3. REMERON [Suspect]
     Indication: PRODUCT USED FOR UNKNOWN INDICATION
     Dosage: 30, 15 MG, QD, PO
     Route: 048
  4. SEROQUEL [Concomitant]

REACTIONS (8)
  - BACK PAIN [None]
  - PRESYNCOPE [None]
  - CHEST PAIN [None]
  - MIGRAINE WITH AURA [None]
  - PERICARDITIS [None]
  - HYPOAESTHESIA [None]
  - CHEST DISCOMFORT [None]
  - TROPONIN INCREASED [None]
